FAERS Safety Report 25441169 (Version 1)
Quarter: 2025Q2

REPORT INFORMATION
  Report Type: Spontaneous
  Country: US (occurrence: US)
  Receive Date: 20250616
  Receipt Date: 20250616
  Transmission Date: 20250716
  Serious: No
  Sender: ELI LILLY AND COMPANY
  Company Number: US-ELI_LILLY_AND_COMPANY-US202506012922

PATIENT
  Age: 45 Year

DRUGS (4)
  1. TRULICITY [Suspect]
     Active Substance: DULAGLUTIDE
     Indication: Type 2 diabetes mellitus
     Route: 058
  2. TRULICITY [Suspect]
     Active Substance: DULAGLUTIDE
     Indication: Liver disorder
  3. TRULICITY [Suspect]
     Active Substance: DULAGLUTIDE
     Indication: Sleep apnoea syndrome
  4. TRULICITY [Suspect]
     Active Substance: DULAGLUTIDE
     Indication: Weight decreased

REACTIONS (3)
  - Accidental underdose [Unknown]
  - Increased appetite [Unknown]
  - Starvation [Unknown]

NARRATIVE: CASE EVENT DATE: 20250602
